FAERS Safety Report 5213168-4 (Version None)
Quarter: 2007Q1

REPORT INFORMATION
  Report Type: 
  Country: None (occurrence: None)
  Receive Date: 20070119
  Receipt Date: 20070116
  Transmission Date: 20070707
  Serious: Yes (Other)
  Sender: FDA-Public Use
  Company Number: US-GLAXOSMITHKLINE-A0635871A

PATIENT
  Age: 3 Year

DRUGS (2)
  1. LAMICTAL [Suspect]
     Indication: LENNOX-GASTAUT SYNDROME
     Dosage: 150MG TWICE PER DAY
     Route: 065
  2. UNSPECIFIED MEDICATION [Concomitant]

REACTIONS (2)
  - DRUG INEFFECTIVE [None]
  - STATUS EPILEPTICUS [None]
